FAERS Safety Report 24580714 (Version 1)
Quarter: 2024Q4

REPORT INFORMATION
  Report Type: Spontaneous
  Country: CN (occurrence: CN)
  Receive Date: 20241105
  Receipt Date: 20241105
  Transmission Date: 20250114
  Serious: Yes (Hospitalization)
  Sender: MERCK
  Company Number: CN-009507513-2411CHN000625

PATIENT
  Age: 78 Year
  Sex: Male
  Weight: 60 kg

DRUGS (2)
  1. JANUVIA [Suspect]
     Active Substance: SITAGLIPTIN PHOSPHATE
     Indication: Diabetes mellitus
     Dosage: 100 MG, QD, ORALLY
     Route: 048
     Dates: start: 20241014, end: 20241018
  2. CEFTAZIDIME [Suspect]
     Active Substance: CEFTAZIDIME
     Indication: Urinary tract infection
     Dosage: 2 G, BID, IV DRIP
     Route: 041
     Dates: start: 20241014, end: 20241018

REACTIONS (1)
  - Drug eruption [Recovering/Resolving]

NARRATIVE: CASE EVENT DATE: 20241018
